FAERS Safety Report 23716325 (Version 2)
Quarter: 2025Q1

REPORT INFORMATION
  Report Type: Spontaneous
  Country: US (occurrence: US)
  Receive Date: 20240408
  Receipt Date: 20250127
  Transmission Date: 20250409
  Serious: Yes (Other)
  Sender: SANDOZ
  Company Number: US-SANDOZ-SDZ2024US036864

PATIENT
  Age: 26 Year
  Sex: Female

DRUGS (17)
  1. MYFORTIC [Suspect]
     Active Substance: MYCOPHENOLATE SODIUM
     Indication: Liver transplant
     Dosage: 720 MG, BID
     Route: 048
     Dates: start: 2022, end: 20240328
  2. ACTIGALL [Concomitant]
     Active Substance: URSODIOL
     Indication: Cholestasis
     Route: 065
     Dates: start: 20240611
  3. CALCIUM\CHOLECALCIFEROL [Concomitant]
     Active Substance: CALCIUM\CHOLECALCIFEROL
     Indication: Liver transplant
     Dosage: 500 UG, BID
     Route: 065
     Dates: start: 2018
  4. CALCIUM\CHOLECALCIFEROL [Concomitant]
     Active Substance: CALCIUM\CHOLECALCIFEROL
     Indication: Bone density abnormal
  5. CLOTRIMAZOLE [Concomitant]
     Active Substance: CLOTRIMAZOLE
     Indication: Candida infection
     Dosage: 10 MG, BID
     Route: 065
     Dates: start: 2013
  6. CLOTRIMAZOLE [Concomitant]
     Active Substance: CLOTRIMAZOLE
     Indication: Prophylaxis
  7. DAPSONE [Concomitant]
     Active Substance: DAPSONE
     Indication: Pneumonia
     Dosage: 100 MG, QW
     Route: 065
     Dates: start: 2023
  8. DAPSONE [Concomitant]
     Active Substance: DAPSONE
     Indication: Prophylaxis
  9. KEFLEX [Concomitant]
     Active Substance: CEPHALEXIN
     Indication: Urinary tract infection
     Dosage: 500 MG, BID
     Route: 065
     Dates: start: 20240606, end: 20240613
  10. MAGNESIUM [Concomitant]
     Active Substance: MAGNESIUM
     Indication: Product used for unknown indication
     Route: 065
  11. PANTOPRAZOLE [Concomitant]
     Active Substance: PANTOPRAZOLE
     Indication: Prophylaxis against gastrointestinal ulcer
     Dosage: 40 MG, QD
     Route: 065
     Dates: start: 2018
  12. PREDNISONE [Concomitant]
     Active Substance: PREDNISONE
     Indication: Transplant rejection
     Dosage: 30 MG, QD
     Route: 065
     Dates: start: 2018
  13. VITAMINS [Concomitant]
     Active Substance: VITAMINS
     Indication: Pregnancy
     Dosage: 1 DF, QD
     Route: 065
  14. SIROLIMUS [Concomitant]
     Active Substance: SIROLIMUS
     Indication: Transplant rejection
     Dosage: 2 MG, QD
     Route: 065
     Dates: start: 2020
  15. TACROLIMUS [Concomitant]
     Active Substance: TACROLIMUS
     Indication: Transplant rejection
     Dosage: 4 MG, BID
     Route: 065
     Dates: start: 2018
  16. URSODIOL [Concomitant]
     Active Substance: URSODIOL
     Indication: Bile output
     Dosage: 300 MG, BID
     Route: 065
     Dates: start: 2018
  17. VALCYTE [Concomitant]
     Active Substance: VALGANCICLOVIR HYDROCHLORIDE
     Indication: Cytomegalovirus infection
     Dosage: 450 MG, QD
     Route: 065
     Dates: start: 2018

REACTIONS (5)
  - Premature delivery [Unknown]
  - Cholestasis [Unknown]
  - Foetal growth restriction [Unknown]
  - Thrombocytopenia [Unknown]
  - Exposure during pregnancy [Unknown]

NARRATIVE: CASE EVENT DATE: 20241109
